FAERS Safety Report 13839867 (Version 1)
Quarter: 2017Q3

REPORT INFORMATION
  Report Type: Spontaneous
  Country: US (occurrence: US)
  Receive Date: 20170805
  Receipt Date: 20170805
  Transmission Date: 20171127
  Serious: No
  Sender: FDA-Public Use
  Company Number: None

PATIENT
  Age: 52 Year
  Sex: Female

DRUGS (17)
  1. FENTANYL. [Suspect]
     Active Substance: FENTANYL
     Indication: PAIN
     Dosage: 50MCG/ML DAILY IV
     Route: 042
     Dates: start: 20161220, end: 20161222
  2. CINACALCET [Concomitant]
     Active Substance: CINACALCET
  3. LANSOPRAZOLE. [Concomitant]
     Active Substance: LANSOPRAZOLE
  4. PREGABALIN. [Suspect]
     Active Substance: PREGABALIN
     Route: 048
  5. ONDANSETRON [Concomitant]
     Active Substance: ONDANSETRON
  6. INSULIN GLARGINE [Concomitant]
     Active Substance: INSULIN GLARGINE
  7. FEBUXOSTAR [Concomitant]
  8. HEPARIN [Concomitant]
     Active Substance: HEPARIN SODIUM
  9. METHADONE [Concomitant]
     Active Substance: METHADONE HYDROCHLORIDE
  10. SENNA [Concomitant]
     Active Substance: SENNA LEAF\SENNOSIDES\SENNOSIDES A AND B
  11. SODIUM BICARBONATE. [Concomitant]
     Active Substance: SODIUM BICARBONATE
  12. VANCOMYCIN [Concomitant]
     Active Substance: VANCOMYCIN
  13. ATENOLOL. [Concomitant]
     Active Substance: ATENOLOL
  14. INSULIN ASPART [Concomitant]
     Active Substance: INSULIN ASPART
  15. SIMVASTATIN. [Concomitant]
     Active Substance: SIMVASTATIN
  16. PIPERACILLIN/TAZOBACTAM [Concomitant]
     Active Substance: PIPERACILLIN SODIUM\TAZOBACTAM SODIUM
  17. POLYETHYLENE GLYCOL 3350. [Concomitant]
     Active Substance: POLYETHYLENE GLYCOL 3350

REACTIONS (1)
  - Overdose [None]

NARRATIVE: CASE EVENT DATE: 20161212
